FAERS Safety Report 8910523 (Version 1)
Quarter: 2012Q4

REPORT INFORMATION
  Report Type: 
  Country: US (occurrence: US)
  Receive Date: 20121114
  Receipt Date: 20121114
  Transmission Date: 20130627
  Serious: Yes (Other)
  Sender: FDA-Public Use
  Company Number: US-PFIZER INC-2012283090

PATIENT
  Sex: Female

DRUGS (1)
  1. PRISTIQ [Suspect]
     Dosage: 50 mg, UNK
     Dates: start: 201211

REACTIONS (3)
  - Congenital cystic kidney disease [Unknown]
  - Proteinuria [Unknown]
  - Renal disorder [Unknown]
